FAERS Safety Report 8682903 (Version 2)
Quarter: 2013Q2

REPORT INFORMATION
  Report Type: Spontaneous
  Country: US (occurrence: US)
  Receive Date: 20120725
  Receipt Date: 20130611
  Transmission Date: 20140414
  Serious: Yes (Hospitalization)
  Sender: FDA-Public Use
  Company Number: US-GLAXOSMITHKLINE-A0841264A

PATIENT
  Age: 53 Year
  Sex: Male
  Weight: 97.7 kg

DRUGS (4)
  1. AVANDIA [Suspect]
     Indication: DIABETES MELLITUS
     Dosage: 4MG PER DAY
     Route: 048
     Dates: start: 2005, end: 200903
  2. ZOCOR [Concomitant]
  3. LISINOPRIL [Concomitant]
  4. PRINZIDE [Concomitant]

REACTIONS (3)
  - Cerebrovascular accident [Not Recovered/Not Resolved]
  - Hemiparesis [Unknown]
  - Amnesia [Unknown]
